FAERS Safety Report 16230584 (Version 7)
Quarter: 2019Q3

REPORT INFORMATION
  Report Type: Report from Study
  Country: ZA (occurrence: ZA)
  Receive Date: 20190423
  Receipt Date: 20190820
  Transmission Date: 20191004
  Serious: Yes (Death, Life-Threatening, Hospitalization)
  Sender: FDA-Public Use
  Company Number: ZA-PFIZER INC-2019150879

PATIENT
  Age: 63 Year
  Sex: Male
  Weight: 80 kg

DRUGS (15)
  1. TOFACITINIB CITRATE [Suspect]
     Active Substance: TOFACITINIB CITRATE
     Indication: RHEUMATOID ARTHRITIS
     Dosage: 10 MG, 2X/DAY
     Route: 048
     Dates: start: 20160706, end: 20161024
  2. DISPRIN [Concomitant]
     Active Substance: ASPIRIN
     Indication: MYOCARDIAL ISCHAEMIA
     Dosage: 30 MG, DAILY
     Route: 048
     Dates: start: 20130919
  3. CIPRAMIL [Concomitant]
     Indication: MYOCARDIAL ISCHAEMIA
     Dosage: 20 MG, DAILY
     Route: 048
     Dates: start: 20161020
  4. CARVEDILOL. [Concomitant]
     Active Substance: CARVEDILOL
     Indication: HYPERTENSION
     Dosage: 3.12 MG, 2X/DAY
     Route: 048
     Dates: start: 20161020
  5. ZOCOR [Concomitant]
     Active Substance: SIMVASTATIN
     Indication: MYOCARDIAL ISCHAEMIA
     Dosage: 40 MG, DAILY
     Route: 048
     Dates: start: 20161020
  6. FUROSEMIDE. [Concomitant]
     Active Substance: FUROSEMIDE
     Indication: OEDEMA PERIPHERAL
     Dosage: 10 MG, DAILY
     Route: 048
     Dates: start: 20160225
  7. FOLIC ACID. [Concomitant]
     Active Substance: FOLIC ACID
     Indication: ANAEMIA
     Dosage: 5 MG, DAILY
     Route: 048
     Dates: start: 20160910
  8. TRAMADOL. [Concomitant]
     Active Substance: TRAMADOL
     Indication: ARTHRITIS
     Dosage: 50 MG, DAILY
     Route: 048
     Dates: start: 20180709
  9. BACTROBAN [Concomitant]
     Active Substance: MUPIROCIN\MUPIROCIN CALCIUM
     Indication: CELLULITIS
     Dosage: 1 APPLICATION
     Route: 061
     Dates: start: 20161005
  10. PANADO [Concomitant]
     Active Substance: ACETAMINOPHEN
     Indication: MYOCARDIAL ISCHAEMIA
     Dosage: 1000 MG, DAILY
     Route: 048
     Dates: start: 20161020
  11. AMLOC [Concomitant]
     Indication: HYPERTENSION
     Dosage: 10 MG, DAILY
     Route: 048
     Dates: start: 20160225
  12. AUTRIN [Concomitant]
     Indication: ANAEMIA
     Dosage: 1 DF, DAILY
     Route: 048
     Dates: start: 20160910
  13. METHOTREXATE. [Concomitant]
     Active Substance: METHOTREXATE
     Indication: RHEUMATOID ARTHRITIS
     Dosage: 15 MG, WEEKLY
     Route: 048
     Dates: start: 1978
  14. SLOW K [Concomitant]
     Active Substance: POTASSIUM CHLORIDE
     Indication: SUPPLEMENTATION THERAPY
     Dosage: UNK, 2X/DAY
     Route: 048
     Dates: start: 20130524
  15. PANAFCORT [Concomitant]
     Active Substance: PREDNISONE
     Indication: RHEUMATOID ARTHRITIS
     Dosage: 5 MG, DAILY
     Route: 048
     Dates: start: 1980

REACTIONS (2)
  - Post procedural sepsis [Fatal]
  - Abdominal hernia [Not Recovered/Not Resolved]

NARRATIVE: CASE EVENT DATE: 201709
